FAERS Safety Report 13383470 (Version 2)
Quarter: 2017Q2

REPORT INFORMATION
  Report Type: Report from Study
  Country: US (occurrence: US)
  Receive Date: 20170329
  Receipt Date: 20170404
  Transmission Date: 20170830
  Serious: No
  Sender: FDA-Public Use
  Company Number: US-EMD SERONO-E2B_80057354

PATIENT
  Sex: Female
  Weight: 48 kg

DRUGS (2)
  1. MULTIVITAMINS WITH IRON            /01825001/ [Concomitant]
     Indication: PRODUCT USED FOR UNKNOWN INDICATION
  2. REBIF [Suspect]
     Active Substance: INTERFERON BETA-1A
     Indication: MULTIPLE SCLEROSIS
     Route: 058
     Dates: start: 20020730

REACTIONS (8)
  - Antiphospholipid antibodies positive [Unknown]
  - Serum ferritin increased [Not Recovered/Not Resolved]
  - Blood iron increased [Unknown]
  - Urine albumin/creatinine ratio increased [Unknown]
  - Blood creatinine increased [Not Recovered/Not Resolved]
  - Blood homocysteine abnormal [Unknown]
  - Injection site induration [Not Recovered/Not Resolved]
  - Transferrin saturation increased [Unknown]

NARRATIVE: CASE EVENT DATE: 2007
